FAERS Safety Report 23276793 (Version 1)
Quarter: 2023Q4

REPORT INFORMATION
  Report Type: Spontaneous
  Country: HR (occurrence: HR)
  Receive Date: 20231208
  Receipt Date: 20231208
  Transmission Date: 20240109
  Serious: Yes (Other)
  Sender: FDA-Public Use
  Company Number: HR-Merck Healthcare KGaA-2023491363

PATIENT
  Age: 70 Year
  Sex: Female

DRUGS (6)
  1. ERBITUX [Suspect]
     Active Substance: CETUXIMAB
     Indication: Nasopharyngeal cancer
     Dosage: UNK UNK, UNKNOWN
     Dates: start: 202109
  2. ERBITUX [Suspect]
     Active Substance: CETUXIMAB
     Dosage: UNK UNK, UNKNOWN (FOR CYCLES)
     Route: 065
     Dates: start: 202203
  3. DOCETAXEL [Suspect]
     Active Substance: DOCETAXEL\DOCETAXEL ANHYDROUS
     Indication: Nasopharyngeal cancer
     Dosage: UNK UNK, UNKNOWN  (FOUR CYCLES)
     Route: 065
     Dates: start: 202109
  4. DOCETAXEL [Suspect]
     Active Substance: DOCETAXEL\DOCETAXEL ANHYDROUS
     Dosage: UNK UNK, UNKNOWN
     Route: 065
     Dates: start: 202203
  5. CARBOPLATIN [Suspect]
     Active Substance: CARBOPLATIN
     Indication: Nasopharyngeal cancer
     Dosage: UNK UNK, UNKNOWN
     Route: 065
     Dates: start: 202109
  6. CARBOPLATIN [Suspect]
     Active Substance: CARBOPLATIN
     Dosage: UNK UNK, UNKNOWN  (FOUR CYCLES)
     Route: 065
     Dates: start: 202203

REACTIONS (2)
  - Neutropenia [Unknown]
  - Off label use [Unknown]
